FAERS Safety Report 9446980 (Version 1)
Quarter: 2013Q3

REPORT INFORMATION
  Report Type: Spontaneous
  Country: US (occurrence: US)
  Receive Date: 20130807
  Receipt Date: 20130807
  Transmission Date: 20140515
  Serious: No
  Sender: FDA-Public Use
  Company Number: US-AMGEN-USASP2013053916

PATIENT
  Age: 30 Year
  Sex: Female

DRUGS (2)
  1. ENBREL [Suspect]
     Indication: PSORIASIS
     Dosage: UNK UNK, 2 TIMES/WK
     Route: 065
     Dates: start: 20130412
  2. ENBREL [Suspect]
     Indication: PSORIATIC ARTHROPATHY

REACTIONS (2)
  - Injection site swelling [Recovered/Resolved]
  - Injection site haemorrhage [Recovered/Resolved]
